FAERS Safety Report 5549471-8 (Version None)
Quarter: 2007Q4

REPORT INFORMATION
  Report Type: 
  Country: None (occurrence: None)
  Receive Date: 20071212
  Receipt Date: 20071205
  Transmission Date: 20080405
  Serious: Yes (Hospitalization)
  Sender: FDA-Public Use
  Company Number: PHNR2007AU02167

PATIENT
  Sex: Female

DRUGS (7)
  1. CEFACLOR [Concomitant]
     Indication: INFECTION
  2. CALCIUM CARBONATE [Concomitant]
  3. LEVOTHYROXINE SODIUM [Concomitant]
  4. CALCITRIOL [Concomitant]
  5. FOLIC ACID [Concomitant]
  6. AMOXICILLIN [Concomitant]
     Indication: PROPHYLAXIS
  7. EXJADE [Suspect]
     Indication: HYPOVITAMINOSIS
     Dosage: 1.3 GRAMS DAILY
     Route: 048
     Dates: start: 20061212

REACTIONS (5)
  - ALANINE AMINOTRANSFERASE INCREASED [None]
  - BLOOD ALBUMIN INCREASED [None]
  - BLOOD ALKALINE PHOSPHATASE INCREASED [None]
  - BLOOD BILIRUBIN INCREASED [None]
  - JAUNDICE CHOLESTATIC [None]
